FAERS Safety Report 15369555 (Version 1)
Quarter: 2018Q3

REPORT INFORMATION
  Report Type: Spontaneous
  Country: US (occurrence: US)
  Receive Date: 20180911
  Receipt Date: 20180911
  Transmission Date: 20181010
  Serious: No
  Sender: FDA-Public Use
  Company Number: US-PFIZER INC-2018364982

PATIENT
  Age: 51 Year
  Sex: Male

DRUGS (1)
  1. EUCRISA [Suspect]
     Active Substance: CRISABOROLE
     Dosage: THIN LAYER TO THE AFFECTED AREA/S TWICE A DAY
     Route: 061
     Dates: start: 201805

REACTIONS (1)
  - Drug ineffective [Unknown]
